FAERS Safety Report 5975126-1 (Version None)
Quarter: 2008Q4

REPORT INFORMATION
  Report Type: 
  Country: None (occurrence: None)
  Receive Date: 20081128
  Receipt Date: 20081111
  Transmission Date: 20090506
  Serious: Yes (Other)
  Sender: FDA-Public Use
  Company Number: 1-16838939

PATIENT
  Age: 15 Year
  Sex: Male
  Weight: 54.4316 kg

DRUGS (1)
  1. SOLODYN [Suspect]
     Dosage: ACNE
     Dates: start: 20080114, end: 20081108

REACTIONS (16)
  - ALTERED VISUAL DEPTH PERCEPTION [None]
  - APHASIA [None]
  - ASTHMA EXERCISE INDUCED [None]
  - BALANCE DISORDER [None]
  - CONFUSIONAL STATE [None]
  - CONVULSION [None]
  - DIZZINESS [None]
  - DYSPNOEA [None]
  - FOAMING AT MOUTH [None]
  - GAIT DISTURBANCE [None]
  - LOSS OF CONSCIOUSNESS [None]
  - READING DISORDER [None]
  - SENSORY DISTURBANCE [None]
  - TINNITUS [None]
  - UNRESPONSIVE TO STIMULI [None]
  - VISUAL IMPAIRMENT [None]
